FAERS Safety Report 8379394-0 (Version None)
Quarter: 2012Q2

REPORT INFORMATION
  Report Type: 
  Country: None (occurrence: None)
  Receive Date: 20120523
  Receipt Date: 20120515
  Transmission Date: 20120825
  Serious: Yes (Hospitalization, Other)
  Sender: FDA-Public Use
  Company Number: FR-B.I. PHARMACEUTICALS,INC./RIDGEFIELD-2012-FF-00022FF

PATIENT
  Sex: Female
  Weight: 70 kg

DRUGS (2)
  1. PRADAXA [Suspect]
     Indication: KNEE ARTHROPLASTY
     Dosage: 150 MG
     Route: 048
     Dates: start: 20111207, end: 20111209
  2. KETOPROFEN [Concomitant]
     Dosage: 200 MG
     Dates: start: 20111206, end: 20111210

REACTIONS (3)
  - VOMITING [None]
  - PULMONARY EMBOLISM [None]
  - NAUSEA [None]
